FAERS Safety Report 4305023-9 (Version None)
Quarter: 2004Q1

REPORT INFORMATION
  Report Type: 
  Country: None (occurrence: None)
  Receive Date: 20040225
  Receipt Date: 20040225
  Transmission Date: 20041129
  Serious: Yes (Hospitalization)
  Sender: FDA-Public Use
  Company Number: None

PATIENT
  Age: 51 Year
  Sex: Male

DRUGS (12)
  1. WARFARIN SODIUM [Suspect]
     Indication: DEEP VEIN THROMBOSIS
     Dosage: 5 MG PO QD
     Route: 048
     Dates: start: 20031015, end: 20031019
  2. DEXAMETHASONE [Concomitant]
  3. DIPHENHYDRAMINE HCL [Concomitant]
  4. DIVALPROEX EC [Concomitant]
  5. ENOXAPARIN SODIUM [Concomitant]
  6. FEXOFENADINE HCL [Concomitant]
  7. LEVETIRACETAM [Concomitant]
  8. LORAZEPAM [Concomitant]
  9. PREDNISONE [Concomitant]
  10. RANITITDINE [Concomitant]
  11. RISPERIDONE [Concomitant]
  12. PHENYTOIN [Concomitant]

REACTIONS (4)
  - RASH ERYTHEMATOUS [None]
  - RASH MACULAR [None]
  - RASH PRURITIC [None]
  - STEVENS-JOHNSON SYNDROME [None]
